FAERS Safety Report 11166018 (Version 1)
Quarter: 2015Q2

REPORT INFORMATION
  Report Type: Spontaneous
  Country: TR (occurrence: TR)
  Receive Date: 20150604
  Receipt Date: 20150604
  Transmission Date: 20150821
  Serious: Yes (Other)
  Sender: FDA-Public Use
  Company Number: TR-AMGEN-TURSP2015054011

PATIENT
  Age: 49 Year
  Sex: Female

DRUGS (1)
  1. ENBREL [Suspect]
     Active Substance: ETANERCEPT
     Indication: RHEUMATOID ARTHRITIS
     Dosage: 25 MG, 2X/WEEK
     Route: 058
     Dates: start: 20140401, end: 201407

REACTIONS (3)
  - Drug ineffective [Recovered/Resolved]
  - Myocardial infarction [Recovered/Resolved]
  - Vascular occlusion [Recovered/Resolved]

NARRATIVE: CASE EVENT DATE: 201407
